FAERS Safety Report 4663519-4 (Version None)
Quarter: 2005Q2

REPORT INFORMATION
  Report Type: 
  Country: None (occurrence: None)
  Receive Date: 20050517
  Receipt Date: 20041203
  Transmission Date: 20051028
  Serious: Yes (Hospitalization)
  Sender: FDA-Public Use
  Company Number: GB-GLAXOSMITHKLINE-B0359495A

PATIENT
  Sex: Female

DRUGS (3)
  1. PAROXETINE HCL [Suspect]
     Route: 065
  2. ZIMOVANE [Concomitant]
     Route: 065
  3. ALCOHOL [Concomitant]
     Route: 065

REACTIONS (8)
  - AGGRESSION [None]
  - ALCOHOL USE [None]
  - CHILD ABUSE [None]
  - DRUG WITHDRAWAL SYNDROME [None]
  - ILL-DEFINED DISORDER [None]
  - OVERDOSE [None]
  - PHYSICAL ABUSE [None]
  - SUICIDE ATTEMPT [None]
